FAERS Safety Report 12138126 (Version 1)
Quarter: 2016Q1

REPORT INFORMATION
  Report Type: Report from Study
  Country: US (occurrence: US)
  Receive Date: 20160302
  Receipt Date: 20160302
  Transmission Date: 20160526
  Serious: No
  Sender: FDA-Public Use
  Company Number: US-AMGEN-USASL2016024385

PATIENT
  Age: 73 Year
  Sex: Female

DRUGS (1)
  1. ENBREL [Suspect]
     Active Substance: ETANERCEPT
     Indication: RHEUMATOID ARTHRITIS
     Dosage: 50 MG, QWK
     Route: 065
     Dates: start: 201602

REACTIONS (12)
  - Oral herpes [Unknown]
  - Ear pain [Unknown]
  - Pain [Unknown]
  - Cough [Unknown]
  - Pallor [Unknown]
  - Chills [Unknown]
  - Dyspnoea [Unknown]
  - Asthenia [Unknown]
  - Hyperhidrosis [Unknown]
  - Eye pain [Unknown]
  - Fatigue [Unknown]
  - Oropharyngeal pain [Unknown]

NARRATIVE: CASE EVENT DATE: 201602
